FAERS Safety Report 6042267-2 (Version None)
Quarter: 2009Q1

REPORT INFORMATION
  Report Type: 
  Country: None (occurrence: None)
  Receive Date: 20090116
  Receipt Date: 20090107
  Transmission Date: 20090719
  Serious: Yes (Other)
  Sender: FDA-Public Use
  Company Number: DK-PFIZER INC-2008099098

PATIENT

DRUGS (1)
  1. ZELDOX [Suspect]
     Route: 048
     Dates: start: 20081001

REACTIONS (3)
  - EPILEPSY [None]
  - INSOMNIA [None]
  - SEDATION [None]
